FAERS Safety Report 18772623 (Version 1)
Quarter: 2021Q1

REPORT INFORMATION
  Report Type: Spontaneous
  Country: US (occurrence: US)
  Receive Date: 20210121
  Receipt Date: 20210121
  Transmission Date: 20210419
  Serious: Yes (Hospitalization, Congenital Anomaly, Other)
  Sender: FDA-Public Use
  Company Number: None

PATIENT
  Age: 23 Year
  Sex: Female
  Weight: 83.01 kg

DRUGS (5)
  1. PROZAC [Concomitant]
     Active Substance: FLUOXETINE HYDROCHLORIDE
  2. KLONOPIN [Concomitant]
     Active Substance: CLONAZEPAM
  3. EXCEDRIN [Concomitant]
     Active Substance: ACETAMINOPHEN\ASPIRIN\CAFFEINE
  4. NEXPLANON [Suspect]
     Active Substance: ETONOGESTREL
     Dates: start: 20141017, end: 20150422
  5. TANAZIDINE [Concomitant]

REACTIONS (4)
  - Ruptured ectopic pregnancy [None]
  - Maternal exposure during pregnancy [None]
  - Foetal exposure during pregnancy [None]
  - Ectopic pregnancy [None]

NARRATIVE: CASE EVENT DATE: 20160819
